FAERS Safety Report 9203836 (Version 1)
Quarter: 2013Q1

REPORT INFORMATION
  Report Type: Spontaneous
  Country: US (occurrence: None)
  Receive Date: 20120709
  Receipt Date: 20120709
  Transmission Date: 20140127
  Serious: No
  Sender: FDA-Public Use
  Company Number: 2012HGS-003540

PATIENT
  Age: 49 Year
  Sex: Female
  Weight: 89.81 kg

DRUGS (15)
  1. BENLYSTA [Suspect]
     Dosage: 1 IN 28 D
     Route: 041
     Dates: start: 20120418
  2. CELLCEPT (MYCOPHENOLATE MOFETIL) (MYCOPHENOLATE MOFETIL) [Concomitant]
  3. PLAQUENIL (HYDROXYCHLOROQINE PHOSPHATE) (HYDROXYCHLOROQUINE PHOSPHATE) [Concomitant]
  4. PREDNISONE (PREDNISONE) (PREDNISONE) [Concomitant]
  5. NIFEDIPINE (NIFEDIPINE) (NIFEDIPINE) [Concomitant]
  6. LEVOTHYROXINE (LEVOTHYROXINE) (LEVOTHYROXINE) [Concomitant]
  7. PROTONIX (PANTOPRAZOLE SODIUM SESQUIHYDRATE) (PANTOPRAZOLE SODIUM SESQUIHYDRATE) [Concomitant]
  8. ASA (ACETYLSALICYLIC ACID) (ACETYLSALICYLIC ACID) [Concomitant]
  9. VITAMIN B 12 (CYANOCOBALAMIN) (CYANOCOBALAMIN) [Concomitant]
  10. CYMBALTA (DULOXETINE HYDROCHLORIDE) (DULOXETINE HYDROCHLORIDE) [Concomitant]
  11. GLUCOSAMINE CHONDROITIN (JORIX) (GLUCOSAMINE, CHONDROITIN SULFATE SODIUM) [Concomitant]
  12. CALCIUM (CALCIUM) (CALCIUM) [Concomitant]
  13. TYLENOL # 3 (LENOLTEC WITH CODEINE NO 1) (CODEINE, PARACETAMOL) [Concomitant]
  14. CLARITIN (LORATADINE) (LORATADINE) [Concomitant]
  15. VICODIN (VICODIN) (PARACETAMOL, HYDROCODONE BITARTRATE) [Concomitant]

REACTIONS (7)
  - Dysgeusia [None]
  - Chills [None]
  - Pharyngeal oedema [None]
  - Swelling face [None]
  - Swollen tongue [None]
  - Hyperhidrosis [None]
  - Paraesthesia oral [None]
